FAERS Safety Report 24180631 (Version 1)
Quarter: 2024Q3

REPORT INFORMATION
  Report Type: Spontaneous
  Country: AT (occurrence: AT)
  Receive Date: 20240806
  Receipt Date: 20240806
  Transmission Date: 20241017
  Serious: Yes (Death, Hospitalization, Other)
  Sender: ACCORD
  Company Number: None

PATIENT
  Age: 63 Year
  Sex: Female
  Weight: 55 kg

DRUGS (43)
  1. CAPECITABINE [Suspect]
     Active Substance: CAPECITABINE
     Indication: Breast cancer
     Dates: start: 20200512, end: 20200519
  2. ABEMACICLIB [Suspect]
     Active Substance: ABEMACICLIB
     Indication: Breast cancer
     Dates: start: 20201029, end: 20201211
  3. FASLODEX [Suspect]
     Active Substance: FULVESTRANT
     Indication: Breast cancer
     Dates: start: 20201029, end: 20201111
  4. LAPATINIB [Suspect]
     Active Substance: LAPATINIB
     Indication: Breast cancer
     Dosage: 1000 MG, 1X/DAY
     Dates: start: 20200829, end: 20201022
  5. FEMARA [Suspect]
     Active Substance: LETROZOLE
     Indication: Breast cancer
     Dosage: FREQUENCY: O.D. - ONCE DAILY MOST RECENT DOSE PRIOR TO THE EVENT: 12/MAY/2020
     Dates: start: 20190508, end: 20190819
  6. HERCEPTIN [Suspect]
     Active Substance: TRASTUZUMAB
     Indication: Breast cancer
     Dates: start: 20180809, end: 20180809
  7. AROMASIN [Suspect]
     Active Substance: EXEMESTANE
     Indication: Breast cancer
     Dosage: O.D. - ONCE DAILY
     Dates: start: 20180719, end: 20190507
  8. PERJETA [Suspect]
     Active Substance: PERTUZUMAB
     Indication: Breast cancer
     Dosage: 840 MG, EVERY 3 WEEKS
     Dates: start: 20180719, end: 20180719
  9. NAVELBINE [Suspect]
     Active Substance: VINORELBINE TARTRATE
     Indication: Breast cancer
     Dates: start: 20181210, end: 20190206
  10. KADCYLA [Suspect]
     Active Substance: ADO-TRASTUZUMAB EMTANSINE
     Indication: Breast cancer
     Dosage: 201.6 MG, EVERY 3 WEEKS
     Dates: start: 20190829, end: 20190829
  11. TRASTUZUMAB [Suspect]
     Active Substance: TRASTUZUMAB
     Indication: Breast cancer
     Dosage: 336 MG, EVERY 3 WEEKS
     Dates: start: 20181129, end: 20190516
  12. DEXPANTHENOL [Concomitant]
     Active Substance: DEXPANTHENOL
     Indication: Conjunctivitis
     Dates: start: 20190221
  13. NOVALGIN [Concomitant]
     Dates: start: 20180727
  14. RANITIDINE HYDROCHLORIDE [Concomitant]
     Active Substance: RANITIDINE HYDROCHLORIDE
  15. DIMETHINDENE [Concomitant]
     Active Substance: DIMETHINDENE
  16. VERTIROSAN [Concomitant]
     Indication: Vertigo
     Dates: start: 20191218
  17. AMOXICILLIN\CLAVULANIC ACID [Concomitant]
     Active Substance: AMOXICILLIN\CLAVULANIC ACID
  18. HYDROMORPHONE HYDROCHLORIDE [Concomitant]
     Active Substance: HYDROMORPHONE HYDROCHLORIDE
     Dates: start: 20180727
  19. ESOMEPRAZOLE [Concomitant]
     Active Substance: ESOMEPRAZOLE
     Indication: Dysphagia
     Dates: start: 20200207
  20. POLYETHYLENE GLYCOLS [Concomitant]
     Active Substance: POLYETHYLENE GLYCOLS
     Dates: start: 20180719
  21. KONAKION [Concomitant]
     Active Substance: PHYTONADIONE
  22. MORPHINE [Concomitant]
     Active Substance: MORPHINE
  23. DEXABENE [Concomitant]
  24. IMODIUM [Concomitant]
     Active Substance: LOPERAMIDE HYDROCHLORIDE
     Indication: Diarrhoea
     Dates: start: 20180731
  25. EUTHYROX [Concomitant]
     Active Substance: LEVOTHYROXINE SODIUM
  26. SUCRALFATE [Concomitant]
     Active Substance: SUCRALFATE
  27. ZOFRAN [Concomitant]
     Active Substance: ONDANSETRON HYDROCHLORIDE
     Indication: Nausea
     Dates: start: 20190919
  28. MAGNESIUM [Concomitant]
     Active Substance: MAGNESIUM
     Dates: start: 20190819
  29. KYTRIL [Concomitant]
     Active Substance: GRANISETRON HYDROCHLORIDE
  30. ORNITHINE ASPARTATE [Concomitant]
     Active Substance: ORNITHINE ASPARTATE
  31. XGEVA [Concomitant]
     Active Substance: DENOSUMAB
     Dates: start: 20181215
  32. HALDOL [Concomitant]
     Active Substance: HALOPERIDOL
  33. DEXAMETHASONE [Concomitant]
     Active Substance: DEXAMETHASONE
     Indication: Vertigo
     Dates: start: 20191114
  34. PREDNISOLONE [Concomitant]
     Active Substance: PREDNISOLONE
  35. SUCRALFATE [Concomitant]
     Active Substance: SUCRALFATE
     Indication: Abdominal pain
     Dates: start: 20200512
  36. NAVELBINE [Suspect]
     Active Substance: VINORELBINE TARTRATE
     Indication: Breast cancer
     Dates: start: 20180719, end: 20181130
  37. NAVELBINE [Suspect]
     Active Substance: VINORELBINE TARTRATE
     Indication: Breast cancer
     Dates: start: 20190206, end: 20190705
  38. PERJETA [Suspect]
     Active Substance: PERTUZUMAB
     Indication: Breast cancer
     Dosage: 420 MG, EVERY 3 WEEKS
     Dates: start: 20180809, end: 20190704
  39. HERCEPTIN [Suspect]
     Active Substance: TRASTUZUMAB
     Indication: Breast cancer
     Dates: start: 20180719, end: 20180719
  40. HERCEPTIN [Suspect]
     Active Substance: TRASTUZUMAB
     Indication: Breast cancer
     Dates: start: 20180830, end: 20181105
  41. FEMARA [Suspect]
     Active Substance: LETROZOLE
     Indication: Breast cancer
     Dates: start: 20200512, end: 20201022
  42. CAPECITABINE [Suspect]
     Active Substance: CAPECITABINE
     Indication: Breast cancer
     Dates: start: 20200326, end: 20200430
  43. FASLODEX [Suspect]
     Active Substance: FULVESTRANT
     Indication: Breast cancer
     Dates: start: 20201125, end: 20210110

REACTIONS (4)
  - Mouth haemorrhage [Unknown]
  - Hepatic failure [Fatal]
  - Hepatic encephalopathy [Unknown]
  - Disease progression [Unknown]

NARRATIVE: CASE EVENT DATE: 20201130
